FAERS Safety Report 9690629 (Version 5)
Quarter: 2014Q2

REPORT INFORMATION
  Report Type: Spontaneous
  Country: US (occurrence: US)
  Receive Date: 20131115
  Receipt Date: 20140425
  Transmission Date: 20141212
  Serious: Yes (Hospitalization, Other)
  Sender: FDA-Public Use
  Company Number: US-BAXTER-2013BAX042024

PATIENT
  Sex: Male

DRUGS (2)
  1. DIANEAL LOW CALCIUM [Suspect]
     Indication: PERITONEAL DIALYSIS
     Route: 033
     Dates: start: 20120810, end: 201403
  2. DIANEAL LOW CALCIUM [Suspect]
     Indication: RENAL FAILURE CHRONIC
     Route: 033
     Dates: start: 201208, end: 201403

REACTIONS (9)
  - Cardiac disorder [Recovered/Resolved]
  - Condition aggravated [Recovered/Resolved]
  - Post procedural complication [Unknown]
  - Gastrointestinal disorder [Unknown]
  - Haematochezia [Unknown]
  - Weight decreased [Recovering/Resolving]
  - Dysuria [Recovering/Resolving]
  - Swelling [Recovering/Resolving]
  - Cholecystitis [Recovering/Resolving]
